FAERS Safety Report 4873876-1 (Version None)
Quarter: 2006Q1

REPORT INFORMATION
  Report Type: 
  Country: None (occurrence: None)
  Receive Date: 20060103
  Receipt Date: 20060103
  Transmission Date: 20060701
  Serious: Yes (Life-Threatening)
  Sender: FDA-Public Use
  Company Number: None

PATIENT
  Sex: Female
  Weight: 61.2356 kg

DRUGS (18)
  1. REVLIMID [Suspect]
     Indication: AMYLOIDOSIS
     Dosage: 5MG  DAILY PO
     Route: 048
     Dates: start: 20051024, end: 20051029
  2. REVLIMID [Suspect]
     Indication: AMYLOIDOSIS
     Dosage: 5MG  DAILY PO
     Route: 048
     Dates: start: 20051205, end: 20051218
  3. PREDNISONE [Concomitant]
  4. PRILOSEC [Concomitant]
  5. DAPSONE [Concomitant]
  6. POTASSIUM [Concomitant]
  7. LASIX [Concomitant]
  8. ASPIRIN [Concomitant]
  9. SYNTHROID [Concomitant]
  10. CLONAZEPAM [Concomitant]
  11. SENNA [Concomitant]
  12. NYSTATIN MOUTHWASH [Concomitant]
  13. OSCAL [Concomitant]
  14. DIFLUCAN [Concomitant]
  15. PROGRAF [Concomitant]
  16. LIPITOR [Concomitant]
  17. CALCIUM GLUCONATE [Concomitant]
  18. VALCYTE [Concomitant]

REACTIONS (6)
  - CHILLS [None]
  - HEART TRANSPLANT [None]
  - HEART TRANSPLANT REJECTION [None]
  - NEUTROPENIA [None]
  - PYREXIA [None]
  - SURGICAL PROCEDURE REPEATED [None]
